FAERS Safety Report 16580658 (Version 2)
Quarter: 2019Q3

REPORT INFORMATION
  Report Type: Not Available
  Country: US (occurrence: US)
  Receive Date: 20190716
  Receipt Date: 20190729
  Transmission Date: 20191004
  Serious: Yes (Hospitalization, Other)
  Sender: FDA-Public Use
  Company Number: US-NEUROCRINE BIOSCIENCES INC.-2019NBI01891

PATIENT
  Sex: Female

DRUGS (16)
  1. WELLBUTRIN [Concomitant]
     Active Substance: BUPROPION HYDROCHLORIDE
  2. QUETIAPINE. [Concomitant]
     Active Substance: QUETIAPINE
     Dosage: SPLIT TABLET
  3. ASPIRIN. [Concomitant]
     Active Substance: ASPIRIN
  4. PROPRANOLOL [Concomitant]
     Active Substance: PROPRANOLOL HYDROCHLORIDE
  5. SEROQUEL [Concomitant]
     Active Substance: QUETIAPINE FUMARATE
  6. FETIZMA [Concomitant]
  7. LEVOMEFOLATE [Concomitant]
  8. CALCITRATE [Concomitant]
     Active Substance: CALCIUM CITRATE
  9. ATORVASTATIN [Concomitant]
     Active Substance: ATORVASTATIN
  10. WELLBUTRIN [Concomitant]
     Active Substance: BUPROPION HYDROCHLORIDE
  11. PROTONIX [Concomitant]
     Active Substance: PANTOPRAZOLE SODIUM
     Dates: start: 201902
  12. INGREZZA [Suspect]
     Active Substance: VALBENAZINE
     Route: 048
     Dates: start: 20181229, end: 2019
  13. PRIMIDONE. [Concomitant]
     Active Substance: PRIMIDONE
     Dosage: HALF A TABLET
  14. WELLBUTRIN [Concomitant]
     Active Substance: BUPROPION HYDROCHLORIDE
  15. INGREZZA [Suspect]
     Active Substance: VALBENAZINE
     Indication: TARDIVE DYSKINESIA
     Route: 048
     Dates: start: 20181221, end: 20181228
  16. PROZAC [Concomitant]
     Active Substance: FLUOXETINE HYDROCHLORIDE

REACTIONS (5)
  - Tardive dyskinesia [Recovering/Resolving]
  - Depression [Recovered/Resolved]
  - Lethargy [Recovered/Resolved]
  - Loss of personal independence in daily activities [Not Recovered/Not Resolved]
  - Drug ineffective [None]

NARRATIVE: CASE EVENT DATE: 2019
